FAERS Safety Report 14750025 (Version 1)
Quarter: 2018Q2

REPORT INFORMATION
  Report Type: Spontaneous
  Country: US (occurrence: US)
  Receive Date: 20180412
  Receipt Date: 20180412
  Transmission Date: 20180711
  Serious: No
  Sender: FDA-Public Use
  Company Number: US-JNJFOC-20180334903

PATIENT
  Age: 50 Year
  Sex: Female
  Weight: 78.02 kg

DRUGS (1)
  1. SUDAFED [Suspect]
     Active Substance: PSEUDOEPHEDRINE HYDROCHLORIDE
     Indication: SINUS CONGESTION
     Dosage: 2 DOSES ON 22-MAR-2018 AND 2 DOSED ON 23-MAR-2018
     Route: 065
     Dates: start: 20180322, end: 20180323

REACTIONS (1)
  - Drug ineffective [Unknown]
